FAERS Safety Report 6283832-7 (Version None)
Quarter: 2009Q3

REPORT INFORMATION
  Report Type: 
  Country: None (occurrence: None)
  Receive Date: 20090724
  Receipt Date: 20090722
  Transmission Date: 20100115
  Serious: Yes (Life-Threatening, Other)
  Sender: FDA-Public Use
  Company Number: CA-ASTRAZENECA-2009UW20507

PATIENT
  Age: 36 Year
  Sex: Female

DRUGS (2)
  1. ZESTRIL [Suspect]
     Dosage: TOOK 3000 MG
     Route: 048
     Dates: start: 20051101
  2. AMLODIPINE [Suspect]

REACTIONS (10)
  - BRADYCARDIA [None]
  - DEPRESSED LEVEL OF CONSCIOUSNESS [None]
  - DYSPNOEA [None]
  - HYPOTENSION [None]
  - OVERDOSE [None]
  - PNEUMONIA [None]
  - RENAL FAILURE [None]
  - SEPSIS [None]
  - SUICIDE ATTEMPT [None]
  - SYNCOPE [None]
